FAERS Safety Report 19464209 (Version 4)
Quarter: 2021Q3

REPORT INFORMATION
  Report Type: Spontaneous
  Country: US (occurrence: US)
  Receive Date: 20210626
  Receipt Date: 20210823
  Transmission Date: 20211014
  Serious: No
  Sender: FDA-Public Use
  Company Number: US-ORGANON-O2106USA001397

PATIENT
  Age: 27 Year
  Sex: Female
  Weight: 92.97 kg

DRUGS (1)
  1. NEXPLANON [Suspect]
     Active Substance: ETONOGESTREL
     Indication: MENSTRUAL CYCLE MANAGEMENT
     Dosage: 68 MILLIGRAM EVERY 3 YEARS, LEFT ARM
     Route: 059
     Dates: start: 20190918, end: 20210607

REACTIONS (4)
  - Abnormal uterine bleeding [Unknown]
  - Complication of device removal [Recovered/Resolved]
  - Product use in unapproved indication [Unknown]
  - Device breakage [Recovered/Resolved]

NARRATIVE: CASE EVENT DATE: 20190918
